FAERS Safety Report 8553308-2 (Version None)
Quarter: 2012Q3

REPORT INFORMATION
  Report Type: 
  Country: None (occurrence: None)
  Receive Date: 20120731
  Receipt Date: 20110722
  Transmission Date: 20120928
  Serious: Yes (Hospitalization)
  Sender: FDA-Public Use
  Company Number: US-BAYER-201025731NA

PATIENT
  Age: 28 Year
  Sex: Female
  Weight: 81 kg

DRUGS (10)
  1. ALLEGRA [Concomitant]
     Indication: RASH PRURITIC
     Dosage: 180 MG (DAILY DOSE), QD,
     Dates: start: 20030101, end: 20080101
  2. BENADRYL [Concomitant]
     Indication: RASH PRURITIC
  3. METROGEL [Concomitant]
     Indication: ROSACEA
     Dosage: UNK UNK, PRN
  4. LEVSIN [Concomitant]
     Indication: DUODENITIS
     Dosage: EVERY 4 HOURS AS NEEDED
  5. ALLEGRA [Concomitant]
     Indication: HYPERSENSITIVITY
  6. PROMETHAZINE [Concomitant]
     Dosage: 25 MG, UNK
  7. SINGULAIR [Concomitant]
     Indication: RASH PRURITIC
  8. MULTIVITAMIN [Concomitant]
  9. ASCORBIC ACID [Concomitant]
  10. YASMIN [Suspect]
     Indication: CONTRACEPTION
     Dosage: UNK UNK, QD
     Route: 048
     Dates: start: 20050501, end: 20081001

REACTIONS (9)
  - CHOLELITHIASIS [None]
  - VOMITING [None]
  - ABDOMINAL PAIN [None]
  - CHOLECYSTITIS CHRONIC [None]
  - BILIARY COLIC [None]
  - GALLBLADDER CHOLESTEROLOSIS [None]
  - DIARRHOEA [None]
  - ABDOMINAL PAIN UPPER [None]
  - NAUSEA [None]
